FAERS Safety Report 8509262-2 (Version None)
Quarter: 2012Q3

REPORT INFORMATION
  Report Type: 
  Country: None (occurrence: None)
  Receive Date: 20120713
  Receipt Date: 20120629
  Transmission Date: 20120928
  Serious: Yes (Death)
  Sender: FDA-Public Use
  Company Number: JP-ROCHE-1049626

PATIENT
  Sex: Female
  Weight: 45 kg

DRUGS (10)
  1. KETOPROFEN [Concomitant]
     Indication: RHEUMATOID ARTHRITIS
     Route: 061
  2. ALENDRONATE SODIUM [Concomitant]
     Indication: PROPHYLAXIS
     Route: 048
  3. ZOLPIDEM [Concomitant]
     Indication: INSOMNIA
     Route: 048
     Dates: start: 20100405
  4. PREDNISOLONE [Concomitant]
     Indication: RHEUMATOID ARTHRITIS
     Route: 048
  5. UREPEARL [Concomitant]
     Indication: DRY SKIN
     Route: 061
     Dates: start: 20111121
  6. PREDNISOLONE [Concomitant]
     Dosage: UNCERTAIN DOSAGE (LESS THAN 5MG)
     Route: 048
  7. TIZANIDINE HYDROCHLORIDE [Concomitant]
     Indication: MUSCLE TWITCHING
     Route: 048
     Dates: start: 20050202
  8. ACTEMRA [Suspect]
     Indication: RHEUMATOID ARTHRITIS
     Route: 041
     Dates: start: 20080714, end: 20120130
  9. SENNOSIDE [Concomitant]
     Indication: CONSTIPATION
     Route: 048
     Dates: start: 20081031, end: 20081128
  10. KETOPROFEN [Concomitant]
     Route: 061
     Dates: start: 20080908

REACTIONS (3)
  - CONVULSION [None]
  - VOMITING [None]
  - HYPONATRAEMIA [None]
